FAERS Safety Report 9619825 (Version 7)
Quarter: 2014Q2

REPORT INFORMATION
  Report Type: Report from Study
  Country: NL (occurrence: NL)
  Receive Date: 20131014
  Receipt Date: 20140606
  Transmission Date: 20141212
  Serious: Yes (Hospitalization)
  Sender: FDA-Public Use
  Company Number: NL-ROCHE-1229210

PATIENT
  Age: 76 Year
  Sex: Male
  Weight: 94 kg

DRUGS (17)
  1. VISMODEGIB [Suspect]
     Indication: BASAL CELL CARCINOMA
     Dosage: FREQUENCY- DAILY, LAST DOSE PRIOR TO SAE WAS 23/MAY/2013. TEMPORARILY INTERRUPTED.
     Route: 048
     Dates: start: 20130409, end: 20130524
  2. VISMODEGIB [Suspect]
     Route: 048
     Dates: start: 20130604
  3. CHLORAMPHENICOL [Concomitant]
     Indication: EYE PAIN
     Route: 065
     Dates: start: 20120711
  4. CHLORAMPHENICOL [Concomitant]
     Route: 065
     Dates: start: 20130111
  5. TOBRADEX [Concomitant]
     Indication: EYE PAIN
     Route: 065
     Dates: start: 20130313, end: 20130604
  6. ISOSORBIDE MONONITRATE [Concomitant]
     Indication: ANGIOPATHY
     Route: 065
     Dates: start: 20130205
  7. METOPROLOL SUCCINATE [Concomitant]
     Indication: ANGIOPATHY
     Route: 065
     Dates: start: 20111125
  8. MONO CEDOCARD RETARD [Concomitant]
     Indication: ANGIOPATHY
     Route: 065
     Dates: start: 20130205
  9. VALSARTAN [Concomitant]
     Indication: ANGIOPATHY
     Route: 065
     Dates: start: 20130205, end: 20130524
  10. SIMVASTATINE [Concomitant]
     Indication: ANGIOPATHY
     Route: 065
     Dates: start: 20120608, end: 20130409
  11. ROSUVASTATIN [Concomitant]
     Route: 065
     Dates: start: 20130409
  12. HYDROCHLOROTHIAZIDE [Concomitant]
     Route: 065
     Dates: start: 20130205, end: 20130524
  13. FRAXIPARINE [Concomitant]
     Route: 065
     Dates: start: 20130523, end: 20130604
  14. HALDOL [Concomitant]
     Indication: DELIRIUM
     Route: 065
     Dates: start: 20130525, end: 20130528
  15. DURATEARS [Concomitant]
     Indication: EYE PAIN
     Route: 065
     Dates: start: 20130604
  16. CRESTOR [Concomitant]
     Indication: HYPERCHOLESTEROLAEMIA
     Route: 065
     Dates: start: 20130410
  17. COSOPT [Concomitant]
     Indication: EYE PAIN
     Route: 047
     Dates: start: 20131220

REACTIONS (1)
  - Pneumonia [Recovered/Resolved]
